FAERS Safety Report 4773396-9 (Version None)
Quarter: 2005Q3

REPORT INFORMATION
  Report Type: 
  Country: None (occurrence: None)
  Receive Date: 20050920
  Receipt Date: 20050913
  Transmission Date: 20060218
  Serious: Yes (Death)
  Sender: FDA-Public Use
  Company Number: US-BRISTOL-MYERS SQUIBB COMPANY-13108758

PATIENT
  Age: 58 Year
  Sex: Female

DRUGS (1)
  1. PARAPLATIN [Suspect]
     Dates: start: 20050714

REACTIONS (1)
  - DEATH [None]
